FAERS Safety Report 9805027 (Version 1)
Quarter: 2014Q1

REPORT INFORMATION
  Report Type: Report from Study
  Country: IT (occurrence: IT)
  Receive Date: 20140109
  Receipt Date: 20140109
  Transmission Date: 20141002
  Serious: Yes (Other)
  Sender: FDA-Public Use
  Company Number: IT-ROCHE-1330782

PATIENT
  Sex: 0

DRUGS (4)
  1. RITUXIMAB [Suspect]
     Indication: CHRONIC LYMPHOCYTIC LEUKAEMIA
     Dosage: FOR FIRST COURCE
     Route: 065
  2. RITUXIMAB [Suspect]
     Dosage: FOR SUBSEQUENT CYCLES EVERY 28 DAYS
     Route: 065
  3. BENDAMUSTINE [Suspect]
     Indication: CHRONIC LYMPHOCYTIC LEUKAEMIA
     Dosage: 6 CYCLES AT A MEDIAN DOSE OF 90 MG/M2 FOR 2 CONSECUTIVE DAYS (15 PATIENTS)
     Route: 065
  4. BENDAMUSTINE [Suspect]
     Dosage: AT A MEDIAN DOSE OF 70 MG/M2 FOR 2 CONSECUTIVE DAYS (9 PATIENTS)
     Route: 065

REACTIONS (5)
  - Neutropenia [Unknown]
  - Skin reaction [Unknown]
  - Infusion related reaction [Unknown]
  - Nausea [Unknown]
  - Vomiting [Unknown]
